FAERS Safety Report 11502659 (Version 2)
Quarter: 2015Q4

REPORT INFORMATION
  Report Type: Report from Study
  Country: JP (occurrence: JP)
  Receive Date: 20150914
  Receipt Date: 20151005
  Transmission Date: 20160304
  Serious: Yes (Other)
  Sender: FDA-Public Use
  Company Number: JP-JNJFOC-20150902600

PATIENT
  Age: 43 Year
  Sex: Female

DRUGS (21)
  1. XEPLION [Suspect]
     Active Substance: PALIPERIDONE PALMITATE
     Indication: SCHIZOPHRENIA, RESIDUAL TYPE
     Route: 030
     Dates: start: 20150622, end: 20150622
  2. XEPLION [Suspect]
     Active Substance: PALIPERIDONE PALMITATE
     Indication: SCHIZOPHRENIA, RESIDUAL TYPE
     Route: 030
     Dates: start: 20150202, end: 20150202
  3. XEPLION [Suspect]
     Active Substance: PALIPERIDONE PALMITATE
     Indication: SCHIZOPHRENIA, RESIDUAL TYPE
     Route: 030
     Dates: start: 20140908, end: 20140908
  4. ATORVASTATIN [Concomitant]
     Active Substance: ATORVASTATIN
     Indication: HYPERLIPIDAEMIA
     Route: 065
     Dates: start: 20150330
  5. XEPLION [Suspect]
     Active Substance: PALIPERIDONE PALMITATE
     Indication: SCHIZOPHRENIA, RESIDUAL TYPE
     Route: 030
     Dates: start: 20150105, end: 20150105
  6. XEPLION [Suspect]
     Active Substance: PALIPERIDONE PALMITATE
     Indication: SCHIZOPHRENIA, RESIDUAL TYPE
     Route: 030
     Dates: start: 20150427, end: 20150427
  7. LODOPIN [Suspect]
     Active Substance: ZOTEPINE
     Indication: SCHIZOPHRENIA, RESIDUAL TYPE
     Route: 048
  8. XEPLION [Suspect]
     Active Substance: PALIPERIDONE PALMITATE
     Indication: SCHIZOPHRENIA, RESIDUAL TYPE
     Route: 030
     Dates: start: 20150727, end: 20150727
  9. XEPLION [Suspect]
     Active Substance: PALIPERIDONE PALMITATE
     Indication: SCHIZOPHRENIA, RESIDUAL TYPE
     Route: 030
     Dates: start: 20140811, end: 20140811
  10. XEPLION [Suspect]
     Active Substance: PALIPERIDONE PALMITATE
     Indication: SCHIZOPHRENIA, RESIDUAL TYPE
     Route: 030
     Dates: start: 20150302, end: 20150302
  11. XEPLION [Suspect]
     Active Substance: PALIPERIDONE PALMITATE
     Indication: SCHIZOPHRENIA, RESIDUAL TYPE
     Route: 030
     Dates: start: 20150825
  12. BROTIZOLAM [Concomitant]
     Active Substance: BROTIZOLAM
     Indication: SCHIZOPHRENIA, RESIDUAL TYPE
     Route: 048
     Dates: start: 20150727
  13. XEPLION [Suspect]
     Active Substance: PALIPERIDONE PALMITATE
     Indication: SCHIZOPHRENIA, RESIDUAL TYPE
     Route: 030
     Dates: start: 20141110, end: 20141110
  14. XEPLION [Suspect]
     Active Substance: PALIPERIDONE PALMITATE
     Indication: SCHIZOPHRENIA, RESIDUAL TYPE
     Route: 030
     Dates: start: 20141010, end: 20141010
  15. XEPLION [Suspect]
     Active Substance: PALIPERIDONE PALMITATE
     Indication: SCHIZOPHRENIA, RESIDUAL TYPE
     Route: 030
     Dates: start: 20150330, end: 20150330
  16. LIPIDIL [Concomitant]
     Active Substance: FENOFIBRATE
     Indication: HYPERLIPIDAEMIA
     Route: 048
  17. BROTIZOLAM [Concomitant]
     Active Substance: BROTIZOLAM
     Indication: SCHIZOPHRENIA, RESIDUAL TYPE
     Route: 048
     Dates: end: 20150621
  18. XEPLION [Suspect]
     Active Substance: PALIPERIDONE PALMITATE
     Indication: SCHIZOPHRENIA, RESIDUAL TYPE
     Route: 030
     Dates: start: 20141208, end: 20141208
  19. XEPLION [Suspect]
     Active Substance: PALIPERIDONE PALMITATE
     Indication: SCHIZOPHRENIA, RESIDUAL TYPE
     Route: 030
     Dates: start: 20150525, end: 20150525
  20. LODOPIN [Suspect]
     Active Substance: ZOTEPINE
     Indication: SCHIZOPHRENIA, RESIDUAL TYPE
     Route: 048
     Dates: start: 20150727
  21. NITRAZEPAM [Concomitant]
     Active Substance: NITRAZEPAM
     Indication: SCHIZOPHRENIA, RESIDUAL TYPE
     Route: 048

REACTIONS (2)
  - Weight increased [Not Recovered/Not Resolved]
  - Diabetes mellitus [Not Recovered/Not Resolved]

NARRATIVE: CASE EVENT DATE: 20150302
